FAERS Safety Report 4621712-0 (Version None)
Quarter: 2005Q1

REPORT INFORMATION
  Report Type: 
  Country: None (occurrence: None)
  Receive Date: 20050329
  Receipt Date: 20050322
  Transmission Date: 20050727
  Serious: Yes (Hospitalization)
  Sender: FDA-Public Use
  Company Number: FR-BRISTOL-MYERS SQUIBB COMPANY-12907689

PATIENT
  Age: 43 Year
  Sex: Female

DRUGS (6)
  1. SUSTIVA [Suspect]
     Indication: HIV INFECTION
     Route: 048
     Dates: start: 20040624
  2. NORVIR [Suspect]
     Dates: start: 20020209
  3. TELZIR [Suspect]
     Dates: start: 20041115
  4. TRANXENE [Suspect]
     Dates: end: 20050215
  5. BACTRIM [Suspect]
  6. METHADONE HCL [Suspect]
     Dates: end: 20050219

REACTIONS (3)
  - HEPATIC ENCEPHALOPATHY [None]
  - HEPATIC ENZYME INCREASED [None]
  - HEPATIC FAILURE [None]
